FAERS Safety Report 4567335-3 (Version None)
Quarter: 2005Q1

REPORT INFORMATION
  Report Type: 
  Country: None (occurrence: None)
  Receive Date: 20050127
  Receipt Date: 20050111
  Transmission Date: 20050727
  Serious: Yes (Death)
  Sender: FDA-Public Use
  Company Number: T05-JPN-00135-01

PATIENT
  Age: 54 Year
  Sex: Male

DRUGS (2)
  1. ESCITALOPRAM (UNBLINDED) (ESCITALOPRAM) [Suspect]
     Indication: MAJOR DEPRESSION
     Dosage: 10 MG QD PO
     Route: 048
     Dates: start: 20041212, end: 20041217
  2. ESCITALOPRAM (UNBLINDED) (ESCITALOPRAM) [Suspect]
     Indication: MAJOR DEPRESSION
     Dosage: 20 MG QD PO
     Route: 048
     Dates: start: 20041218, end: 20050105

REACTIONS (1)
  - DYSURIA [None]
